FAERS Safety Report 6010936-6 (Version None)
Quarter: 2008Q4

REPORT INFORMATION
  Report Type: 
  Country: None (occurrence: None)
  Receive Date: 20081218
  Receipt Date: 20081212
  Transmission Date: 20090506
  Serious: Yes (Hospitalization)
  Sender: FDA-Public Use
  Company Number: A0739924A

PATIENT
  Age: 49 Year
  Sex: Female
  Weight: 127.3 kg

DRUGS (5)
  1. AVANDIA [Suspect]
     Indication: TYPE 2 DIABETES MELLITUS
     Dosage: 8MG PER DAY
     Route: 048
     Dates: start: 20010101, end: 20070701
  2. LIPITOR [Concomitant]
  3. ASPIRIN [Concomitant]
  4. VICODIN [Concomitant]
  5. RENAGEL [Concomitant]

REACTIONS (6)
  - ANXIETY [None]
  - CONVULSION [None]
  - CORONARY ARTERY STENOSIS [None]
  - MYOCARDIAL INFARCTION [None]
  - PAIN [None]
  - POST PROCEDURAL COMPLICATION [None]
